FAERS Safety Report 6444255-0 (Version None)
Quarter: 2009Q4

REPORT INFORMATION
  Report Type: 
  Country: None (occurrence: None)
  Receive Date: 20091116
  Receipt Date: 20091116
  Transmission Date: 20100525
  Serious: No
  Sender: FDA-Public Use
  Company Number: None

PATIENT
  Age: 36 Year
  Sex: Male
  Weight: 58.9676 kg

DRUGS (1)
  1. NUVIGIL [Suspect]
     Indication: SLEEP APNOEA SYNDROME
     Dosage: 150 MG DAILY ORAL
     Route: 048
     Dates: start: 20091102

REACTIONS (4)
  - ASTHENOPIA [None]
  - EYE PAIN [None]
  - FEELING JITTERY [None]
  - HEADACHE [None]
